FAERS Safety Report 15998973 (Version 1)
Quarter: 2019Q1

REPORT INFORMATION
  Report Type: Spontaneous
  Country: DE (occurrence: DE)
  Receive Date: 20190223
  Receipt Date: 20190223
  Transmission Date: 20190418
  Serious: Yes (Life-Threatening, Hospitalization, Other)
  Sender: FDA-Public Use
  Company Number: PHHY2019DE041981

PATIENT
  Age: 93 Year
  Sex: Female

DRUGS (11)
  1. DOXEPIN HYDROCHLORIDE. [Interacting]
     Active Substance: DOXEPIN HYDROCHLORIDE
     Indication: AGITATION
  2. BROMAZANIL [Concomitant]
     Active Substance: BROMAZEPAM
     Indication: AGITATION
     Dosage: UNK
     Route: 065
  3. BROMAZANIL [Concomitant]
     Active Substance: BROMAZEPAM
     Indication: RESTLESSNESS
  4. ANASTROZOL [Concomitant]
     Active Substance: ANASTROZOLE
     Indication: PRODUCT USED FOR UNKNOWN INDICATION
     Dosage: 1 MG, UNK
     Route: 065
  5. L-THYROXIN [Concomitant]
     Active Substance: LEVOTHYROXINE SODIUM
     Indication: PRODUCT USED FOR UNKNOWN INDICATION
     Dosage: 75 ?G, UNK
     Route: 065
  6. RAMIPRIL. [Concomitant]
     Active Substance: RAMIPRIL
     Indication: PRODUCT USED FOR UNKNOWN INDICATION
     Dosage: 5 MG, UNK
     Route: 065
  7. RISPERIDONE. [Suspect]
     Active Substance: RISPERIDONE
     Indication: RESTLESSNESS
     Dosage: 0.5 MG, TID
     Route: 065
  8. DOXEPIN HYDROCHLORIDE. [Interacting]
     Active Substance: DOXEPIN HYDROCHLORIDE
     Indication: RESTLESSNESS
     Dosage: 10-10-25 MG, UNK
     Route: 065
  9. BUSPIRONE [Interacting]
     Active Substance: BUSPIRONE HYDROCHLORIDE
     Indication: PSYCHOTIC DISORDER
     Dosage: 5 MG, UNK
     Route: 065
  10. ASPIRIN. [Concomitant]
     Active Substance: ASPIRIN
     Indication: PRODUCT USED FOR UNKNOWN INDICATION
     Dosage: 100 MG, UNK
     Route: 065
  11. LACTULOSE. [Concomitant]
     Active Substance: LACTULOSE
     Indication: PRODUCT USED FOR UNKNOWN INDICATION
     Dosage: 10 ML, UNK
     Route: 065

REACTIONS (11)
  - Drug interaction [Recovered/Resolved]
  - Hypertonia [Recovering/Resolving]
  - C-reactive protein increased [Recovering/Resolving]
  - Feeling cold [Recovered/Resolved]
  - Autonomic nervous system imbalance [Recovered/Resolved]
  - Hypothermia [Recovered/Resolved]
  - Disturbance in attention [Recovering/Resolving]
  - Off label use [Recovered/Resolved]
  - Body temperature decreased [Recovering/Resolving]
  - Somnolence [Recovered/Resolved]
  - Hypervigilance [Recovered/Resolved]
